FAERS Safety Report 4579697-1 (Version None)
Quarter: 2005Q1

REPORT INFORMATION
  Report Type: 
  Country: None (occurrence: None)
  Receive Date: 20050214
  Receipt Date: 20050203
  Transmission Date: 20050727
  Serious: Yes (Hospitalization, Other)
  Sender: FDA-Public Use
  Company Number: US-ABBOTT-05P-163-0289366-00

PATIENT
  Sex: Female
  Weight: 63.56 kg

DRUGS (1)
  1. SYNTHROID [Suspect]
     Indication: HYPOTHYROIDISM
     Dosage: MULTIPLE DOSE CHANGES
     Route: 048

REACTIONS (2)
  - COLON CANCER [None]
  - CONSTIPATION [None]
